FAERS Safety Report 8318344-X (Version None)
Quarter: 2012Q2

REPORT INFORMATION
  Report Type: 
  Country: None (occurrence: None)
  Receive Date: 20120427
  Receipt Date: 20120420
  Transmission Date: 20120825
  Serious: Yes (Hospitalization)
  Sender: FDA-Public Use
  Company Number: HU-JNJFOC-20120410744

PATIENT
  Sex: Female
  Weight: 81 kg

DRUGS (15)
  1. PLACEBO [Suspect]
     Indication: RHEUMATOID ARTHRITIS
     Route: 058
     Dates: start: 20061004, end: 20070905
  2. METHOTREXATE [Suspect]
     Indication: RHEUMATOID ARTHRITIS
     Dosage: 4-8 CAPSULES
     Route: 048
     Dates: start: 20061004
  3. RABEPRAZOLE SODIUM [Concomitant]
     Route: 048
     Dates: start: 20051201
  4. CARVEDILOL [Concomitant]
     Route: 048
     Dates: start: 20100101
  5. POTASSIUM CHLORIDE [Concomitant]
     Route: 048
     Dates: start: 20051201
  6. BISOPROLOL FUMARATE [Concomitant]
     Route: 048
     Dates: start: 20051201
  7. GOLIMUMAB [Suspect]
     Route: 058
  8. METHYLPREDNISOLONE [Concomitant]
     Route: 048
     Dates: start: 20051201
  9. INDOMETHACIN [Concomitant]
     Route: 054
     Dates: start: 20051201
  10. DIVIGEL [Concomitant]
     Route: 062
     Dates: start: 20100101
  11. VITAMIN D [Concomitant]
     Route: 048
     Dates: start: 20100101
  12. LEVOTHYROXINE SODIUM [Concomitant]
     Route: 048
     Dates: start: 20110727
  13. GOLIMUMAB [Suspect]
     Indication: RHEUMATOID ARTHRITIS
     Dosage: 4-8 CAPSULES
     Route: 058
     Dates: start: 20071010, end: 20110803
  14. METHOTREXATE [Concomitant]
     Route: 048
     Dates: start: 20080618
  15. FOLIC ACID [Concomitant]
     Route: 048
     Dates: start: 20061004

REACTIONS (1)
  - HEPATITIS B [None]
